FAERS Safety Report 21615653 (Version 3)
Quarter: 2023Q4

REPORT INFORMATION
  Report Type: Report from Study
  Country: US (occurrence: US)
  Receive Date: 20221118
  Receipt Date: 20231024
  Transmission Date: 20240110
  Serious: No
  Sender: FDA-Public Use
  Company Number: US-IDORSIA-002061-2022-US

PATIENT
  Sex: Female

DRUGS (1)
  1. QUVIVIQ [Suspect]
     Active Substance: DARIDOREXANT
     Indication: Insomnia
     Dosage: 50 MG, TAKE ONE HALF TO ONE TABLET ONCE A DAY
     Route: 048

REACTIONS (3)
  - Peripheral swelling [Unknown]
  - Migraine [Unknown]
  - Product prescribing error [Unknown]
